FAERS Safety Report 25570665 (Version 1)
Quarter: 2025Q3

REPORT INFORMATION
  Report Type: Report from Study
  Country: TW (occurrence: TW)
  Receive Date: 20250717
  Receipt Date: 20250717
  Transmission Date: 20251021
  Serious: Yes (Other)
  Sender: ACCORD
  Company Number: TW-Accord-494561

PATIENT

DRUGS (3)
  1. CISPLATIN [Suspect]
     Active Substance: CISPLATIN
     Indication: Small cell lung cancer extensive stage
  2. ETOPOSIDE [Suspect]
     Active Substance: ETOPOSIDE
     Indication: Small cell lung cancer extensive stage
  3. CARBOPLATIN [Suspect]
     Active Substance: CARBOPLATIN
     Indication: Small cell lung cancer extensive stage

REACTIONS (1)
  - Neurotoxicity [Unknown]
